FAERS Safety Report 7909213-5 (Version None)
Quarter: 2011Q4

REPORT INFORMATION
  Report Type: 
  Country: None (occurrence: None)
  Receive Date: 20111111
  Receipt Date: 20111005
  Transmission Date: 20120403
  Serious: Yes (Other)
  Sender: FDA-Public Use
  Company Number: US-ASTRAZENECA-2011SE59987

PATIENT
  Sex: Female

DRUGS (1)
  1. NEXIUM [Suspect]
     Indication: CALCINOSIS
     Route: 048

REACTIONS (6)
  - CARDIAC FAILURE CONGESTIVE [None]
  - DRUG DOSE OMISSION [None]
  - BREAST CANCER [None]
  - CARDIOMYOPATHY [None]
  - MITRAL VALVE INCOMPETENCE [None]
  - WRONG DRUG ADMINISTERED [None]
